FAERS Safety Report 10239260 (Version 2)
Quarter: 2014Q2

REPORT INFORMATION
  Report Type: Spontaneous
  Country: US (occurrence: US)
  Receive Date: 20140616
  Receipt Date: 20140616
  Transmission Date: 20141212
  Serious: Yes (Hospitalization, Other)
  Sender: FDA-Public Use
  Company Number: US-009507513-2010SP063660

PATIENT
  Sex: Female
  Weight: 102.51 kg

DRUGS (3)
  1. NUVARING [Suspect]
     Indication: CONTRACEPTION
     Dosage: UNK UNK, QM
     Route: 067
     Dates: start: 200409, end: 200610
  2. NUVARING [Suspect]
     Indication: MENSTRUAL CYCLE MANAGEMENT
     Dosage: UNK UNK, QM
     Dates: start: 200706, end: 200812
  3. SYMBICORT [Concomitant]
     Indication: ASTHMA
     Dosage: UNK UNK, PRN

REACTIONS (17)
  - Tachycardia [Unknown]
  - Goitre [Not Recovered/Not Resolved]
  - Hypoxia [Recovering/Resolving]
  - Adenoma benign [Unknown]
  - Phlebitis [Unknown]
  - Hypertension [Not Recovered/Not Resolved]
  - Deep vein thrombosis [Not Recovered/Not Resolved]
  - Pulmonary embolism [Recovered/Resolved]
  - Pain [Unknown]
  - Panic attack [Unknown]
  - Insomnia [Unknown]
  - Emotional distress [Unknown]
  - Mental disorder [Unknown]
  - Tricuspid valve incompetence [Unknown]
  - Antiphospholipid antibodies [Unknown]
  - Depression [Not Recovered/Not Resolved]
  - Hypersensitivity [Unknown]
